FAERS Safety Report 13206618 (Version 1)
Quarter: 2017Q1

REPORT INFORMATION
  Report Type: Spontaneous
  Country: US (occurrence: US)
  Receive Date: 20170208
  Receipt Date: 20170208
  Transmission Date: 20170428
  Serious: Yes (Life-Threatening, Hospitalization)
  Sender: FDA-Public Use
  Company Number: None

PATIENT
  Age: 73 Year
  Sex: Female
  Weight: 83.6 kg

DRUGS (9)
  1. METOPROLOL ER. SUCCINATE [Concomitant]
  2. ZOMETA [Concomitant]
     Active Substance: ZOLEDRONIC ACID
  3. CENTRUM SILVER [Concomitant]
     Active Substance: MINERALS\VITAMINS
  4. HYDROCHLOROTHIAZIDE. [Concomitant]
     Active Substance: HYDROCHLOROTHIAZIDE
  5. IBRANCE [Suspect]
     Active Substance: PALBOCICLIB
     Route: 048
  6. LETROZOLE. [Concomitant]
     Active Substance: LETROZOLE
  7. CALCIUM [Concomitant]
     Active Substance: CALCIUM
  8. LISINOPRIL. [Concomitant]
     Active Substance: LISINOPRIL
  9. ASPIRIN. [Concomitant]
     Active Substance: ASPIRIN

REACTIONS (6)
  - Pancytopenia [None]
  - Neutropenia [None]
  - Ascites [None]
  - Acute kidney injury [None]
  - Dehydration [None]
  - Anaemia [None]

NARRATIVE: CASE EVENT DATE: 20170125
